FAERS Safety Report 13382853 (Version 2)
Quarter: 2021Q2

REPORT INFORMATION
  Report Type: Spontaneous
  Country: ES (occurrence: ES)
  Receive Date: 20170329
  Receipt Date: 20210419
  Transmission Date: 20210716
  Serious: Yes (Other)
  Sender: FDA-Public Use
  Company Number: ES-JNJFOC-20170327783

PATIENT
  Age: 75 Year
  Sex: Female

DRUGS (1)
  1. TRABECTEDIN [Suspect]
     Active Substance: TRABECTEDIN
     Indication: PRODUCT USED FOR UNKNOWN INDICATION
     Route: 042
     Dates: start: 201605, end: 201701

REACTIONS (3)
  - Asthenia [Unknown]
  - Pneumonitis [Unknown]
  - Myalgia [Unknown]

NARRATIVE: CASE EVENT DATE: 201701
